FAERS Safety Report 10048064 (Version 2)
Quarter: 2014Q1

REPORT INFORMATION
  Report Type: Other
  Country: GB (occurrence: GB)
  Receive Date: 20140331
  Receipt Date: 20140331
  Transmission Date: 20141002
  Serious: Yes (Life-Threatening, Hospitalization, Other)
  Sender: FDA-Public Use
  Company Number: GB-TAKEDA-2013TJP003481

PATIENT
  Age: 67 Year
  Sex: Female

DRUGS (6)
  1. LANSOPRAZOLE [Suspect]
     Indication: GASTROINTESTINAL DISORDER
     Dosage: 30 MG, QD
     Route: 048
     Dates: start: 20131115
  2. WARFARIN [Interacting]
     Indication: ATRIAL FIBRILLATION
     Dosage: AT UNKNOWN DOSE (DECIDED AS PER HER INR LEVELS)
     Route: 048
  3. SIMVASTATIN [Concomitant]
  4. VERAPAMIL [Concomitant]
  5. ALENDRONIC ACID [Concomitant]
  6. ADCAL-D3 [Concomitant]

REACTIONS (2)
  - Drug interaction [Unknown]
  - International normalised ratio increased [Recovered/Resolved]
